FAERS Safety Report 5140142-9 (Version None)
Quarter: 2006Q4

REPORT INFORMATION
  Report Type: 
  Country: None (occurrence: None)
  Receive Date: 20061024
  Receipt Date: 20061004
  Transmission Date: 20070319
  Serious: Yes (Other)
  Sender: FDA-Public Use
  Company Number: US200610001099

PATIENT
  Age: 60 Year
  Sex: Female

DRUGS (22)
  1. FORTEO [Suspect]
     Indication: OSTEOPOROSIS
     Dates: start: 20060201
  2. FORTEO [Concomitant]
  3. BUMEX [Concomitant]
  4. MAGNESIUM (MAGNESIUM) [Concomitant]
  5. HEPARIN [Concomitant]
  6. PLAVIX [Concomitant]
  7. KADIAN [Concomitant]
  8. CELEXA [Concomitant]
  9. PREDNISONE TAB [Concomitant]
  10. TRAZODONE HCL [Concomitant]
  11. VICODIN [Concomitant]
  12. VISTARIL [Concomitant]
  13. PRILOSEC [Concomitant]
  14. METHOTREXATE [Concomitant]
  15. TOPRAL (SULTOPRIDE) [Concomitant]
  16. LISINOPRIL [Concomitant]
  17. METOLAZONE [Concomitant]
  18. SPIRONOLACTONE [Concomitant]
  19. COREG [Concomitant]
  20. GLYBURIDE [Concomitant]
  21. INSULIN (INSULIN) [Concomitant]
  22. NEURONTIN [Concomitant]

REACTIONS (5)
  - CONVULSION [None]
  - FALL [None]
  - FRACTURED COCCYX [None]
  - LOSS OF CONSCIOUSNESS [None]
  - PHARMACEUTICAL PRODUCT COMPLAINT [None]
